FAERS Safety Report 7724969-2 (Version None)
Quarter: 2011Q3

REPORT INFORMATION
  Report Type: 
  Country: None (occurrence: None)
  Receive Date: 20110901
  Receipt Date: 20110823
  Transmission Date: 20111222
  Serious: Yes (Hospitalization)
  Sender: FDA-Public Use
  Company Number: JP-ABBOTT-11P-087-0844740-00

PATIENT
  Sex: Female
  Weight: 17.4 kg

DRUGS (5)
  1. ZESULAN [Concomitant]
     Indication: UPPER RESPIRATORY TRACT INFLAMMATION
     Route: 048
     Dates: start: 20110725, end: 20110730
  2. HOKUNALIN [Concomitant]
     Indication: BRONCHITIS
     Dosage: 1 IN 1 DAY, TAPE
     Route: 061
     Dates: start: 20110725
  3. COCARL [Concomitant]
     Indication: PRODUCT USED FOR UNKNOWN INDICATION
     Route: 048
     Dates: start: 20110725
  4. CLARITHROMYCIN [Suspect]
     Indication: BRONCHITIS
     Route: 048
     Dates: start: 20110725, end: 20110730
  5. MUCODYNE [Concomitant]
     Indication: BRONCHITIS
     Route: 048
     Dates: start: 20110725, end: 20110730

REACTIONS (1)
  - VASCULAR PURPURA [None]
